FAERS Safety Report 13769165 (Version 3)
Quarter: 2018Q1

REPORT INFORMATION
  Report Type: Spontaneous
  Country: US (occurrence: US)
  Receive Date: 20170719
  Receipt Date: 20180309
  Transmission Date: 20180508
  Serious: No
  Sender: FDA-Public Use
  Company Number: US-LUNDBECK-DKLU2030329

PATIENT
  Sex: Male

DRUGS (2)
  1. NORTHERA [Suspect]
     Active Substance: DROXIDOPA
     Route: 065
  2. NORTHERA [Suspect]
     Active Substance: DROXIDOPA
     Indication: PRODUCT USED FOR UNKNOWN INDICATION
     Dosage: NO TITRATION
     Route: 065
     Dates: start: 20170421

REACTIONS (12)
  - Nausea [Unknown]
  - Photophobia [Unknown]
  - Blood pressure decreased [Not Recovered/Not Resolved]
  - Phonophobia [Unknown]
  - Pain [Unknown]
  - Dysarthria [Unknown]
  - Aphasia [Unknown]
  - Movement disorder [Unknown]
  - Gait disturbance [Unknown]
  - Dizziness [Unknown]
  - Asthenia [Unknown]
  - Headache [Unknown]
